FAERS Safety Report 15366224 (Version 1)
Quarter: 2018Q3

REPORT INFORMATION
  Report Type: Spontaneous
  Country: US (occurrence: US)
  Receive Date: 20180831
  Receipt Date: 20180831
  Transmission Date: 20181010
  Serious: Yes (Disabling)
  Sender: FDA-Public Use
  Company Number: None

PATIENT
  Age: 59 Year
  Sex: Female
  Weight: 61.23 kg

DRUGS (9)
  1. ATORVASTATIN [Concomitant]
     Active Substance: ATORVASTATIN
  2. BUTAL/ACETAMIN/CF [Concomitant]
  3. MULTIVITAMIN [Concomitant]
     Active Substance: VITAMINS
  4. LISINOPRIL. [Concomitant]
     Active Substance: LISINOPRIL
  5. AMLODIPINE [Concomitant]
     Active Substance: AMLODIPINE BESYLATE
  6. XARELTO [Suspect]
     Active Substance: RIVAROXABAN
     Indication: THROMBOSIS
     Dosage: ?          QUANTITY:2?15 MGS ;OTHER FREQUENCY:2?15 MGS A DAY ;?
     Route: 048
  7. XARELTO [Suspect]
     Active Substance: RIVAROXABAN
     Dosage: ?          QUANTITY:20 MG MILLIGRAM(S);?
     Route: 048
  8. LEVETIRACETAM. [Concomitant]
     Active Substance: LEVETIRACETAM
  9. CALCIUM D [Concomitant]
     Active Substance: CALCIUM\VITAMIN D

REACTIONS (5)
  - Fatigue [None]
  - Loss of consciousness [None]
  - Cerebral haemorrhage [None]
  - Cerebrovascular accident [None]
  - Depression [None]

NARRATIVE: CASE EVENT DATE: 20180809
